FAERS Safety Report 5815383-5 (Version None)
Quarter: 2008Q3

REPORT INFORMATION
  Report Type: 
  Country: None (occurrence: None)
  Receive Date: 20080718
  Receipt Date: 20080710
  Transmission Date: 20090109
  Serious: Yes (Other)
  Sender: FDA-Public Use
  Company Number: US-PFIZER INC-2008046730

PATIENT
  Sex: Female
  Weight: 68.9 kg

DRUGS (5)
  1. LIPITOR [Suspect]
     Indication: BLOOD CHOLESTEROL INCREASED
  2. LISINOPRIL AND HYDROCHLOROTHIAZIDE [Suspect]
  3. LISINOPRIL [Concomitant]
     Indication: HYPERTENSION
  4. ZETIA [Concomitant]
  5. AMARYL [Concomitant]
     Indication: DIABETES MELLITUS

REACTIONS (7)
  - ARTHROPATHY [None]
  - BLOOD TRIGLYCERIDES INCREASED [None]
  - BURNING SENSATION [None]
  - FOOD AVERSION [None]
  - KNEE ARTHROPLASTY [None]
  - MUSCLE SPASMS [None]
  - NAUSEA [None]
